FAERS Safety Report 15023341 (Version 1)
Quarter: 2018Q2

REPORT INFORMATION
  Report Type: Spontaneous
  Country: US (occurrence: US)
  Receive Date: 20180618
  Receipt Date: 20180618
  Transmission Date: 20180711
  Serious: Yes (Hospitalization)
  Sender: FDA-Public Use
  Company Number: US-VERTEX PHARMACEUTICALS-2018-004064

PATIENT
  Age: 20 Year
  Sex: Female

DRUGS (19)
  1. MAGNESIUM SULFATE. [Concomitant]
     Active Substance: MAGNESIUM SULFATE
  2. DULCOLAX (BISACODYL) [Concomitant]
     Active Substance: BISACODYL
  3. FLOVENT [Concomitant]
     Active Substance: FLUTICASONE PROPIONATE
  4. NUTREN 2.0 [Concomitant]
  5. HYPERSAL [Concomitant]
  6. ORKAMBI [Suspect]
     Active Substance: IVACAFTOR\LUMACAFTOR
     Indication: CYSTIC FIBROSIS
     Dosage: 2 DOSAGE FORM (200/125 MG EACH), BID
     Route: 048
     Dates: start: 20160720
  7. COMBIVENT [Concomitant]
     Active Substance: ALBUTEROL SULFATE\IPRATROPIUM BROMIDE
  8. VENTOLIN [Concomitant]
     Active Substance: ALBUTEROL SULFATE
  9. VITAMIN D                          /00107901/ [Concomitant]
     Active Substance: ERGOCALCIFEROL
  10. MIRTAZAPINE. [Concomitant]
     Active Substance: MIRTAZAPINE
  11. PULMOZYME [Concomitant]
     Active Substance: DORNASE ALFA
  12. MEPHYTON [Concomitant]
     Active Substance: PHYTONADIONE
  13. CREON [Concomitant]
     Active Substance: PANCRELIPASE AMYLASE\PANCRELIPASE LIPASE\PANCRELIPASE PROTEASE
  14. FLONASE                            /00908302/ [Concomitant]
     Active Substance: MOMETASONE FUROATE
  15. CAYSTON [Concomitant]
     Active Substance: AZTREONAM
  16. AQUADEKS                           /07679501/ [Concomitant]
     Active Substance: MINERALS\VITAMINS
  17. ZYRTEC [Concomitant]
     Active Substance: CETIRIZINE HYDROCHLORIDE
  18. GLUCAGON. [Concomitant]
     Active Substance: GLUCAGON
  19. RANITIDINE. [Concomitant]
     Active Substance: RANITIDINE

REACTIONS (1)
  - Distal intestinal obstruction syndrome [Unknown]

NARRATIVE: CASE EVENT DATE: 20170831
